FAERS Safety Report 16983620 (Version 2)
Quarter: 2021Q4

REPORT INFORMATION
  Report Type: Spontaneous
  Country: US (occurrence: US)
  Receive Date: 20191101
  Receipt Date: 20211018
  Transmission Date: 20220303
  Serious: No
  Sender: FDA-Public Use
  Company Number: US-PFIZER INC-2015075230

PATIENT
  Age: 64 Year
  Sex: Female
  Weight: 91 kg

DRUGS (2)
  1. LYRICA [Suspect]
     Active Substance: PREGABALIN
     Indication: Fibromyalgia
     Dosage: 50 MG, TWICE A DAY
     Route: 048
     Dates: start: 2006
  2. LYRICA [Suspect]
     Active Substance: PREGABALIN
     Dosage: 50 MG, THRICE A DAY

REACTIONS (1)
  - Pain [Unknown]
